FAERS Safety Report 7027079-5 (Version None)
Quarter: 2010Q4

REPORT INFORMATION
  Report Type: 
  Country: None (occurrence: None)
  Receive Date: 20101004
  Receipt Date: 20100924
  Transmission Date: 20110411
  Serious: Yes (Hospitalization, Other)
  Sender: FDA-Public Use
  Company Number: US-BAYER-200916788NA

PATIENT
  Age: 60 Year
  Sex: Female
  Weight: 52 kg

DRUGS (13)
  1. SORAFENIB [Suspect]
     Indication: BREAST CANCER METASTATIC
     Dosage: TOTAL DAILY DOSE: 800 MG  UNIT DOSE: 200 MG
     Route: 048
     Dates: start: 20081229, end: 20090107
  2. SORAFENIB [Suspect]
     Dosage: TOTAL DAILY DOSE: 400 MG  UNIT DOSE: 200 MG
     Route: 048
     Dates: start: 20090114, end: 20090317
  3. TAXOL [Suspect]
     Indication: BREAST CANCER METASTATIC
     Dosage: 21.2857 MG (149 MG, 1 IN 1 WK)
     Route: 042
     Dates: start: 20081229, end: 20090309
  4. HYDROCHLOROTHIAZIDE [Concomitant]
     Indication: HYPERTENSION
     Dosage: TOTAL DAILY DOSE: 25 MG
     Route: 048
  5. TARKA [Concomitant]
     Indication: HYPERTENSION
     Dosage: AS USED: 2/240 MG
     Route: 048
  6. CALCIUM AND VITAMIN D [Concomitant]
     Indication: MINERAL SUPPLEMENTATION
     Dosage: 1 DOSAGE FORM
     Route: 048
  7. ARANESP [Concomitant]
     Indication: PROPHYLAXIS
     Dosage: TOTAL DAILY DOSE: 300 ?G
     Route: 058
     Dates: start: 20090318, end: 20090318
  8. NEUPOGEN [Concomitant]
     Indication: PROPHYLAXIS
     Dosage: TOTAL DAILY DOSE: 300 ?G
     Route: 058
     Dates: start: 20090223, end: 20090223
  9. NEUPOGEN [Concomitant]
     Dosage: TOTAL DAILY DOSE: 300 ?G
     Route: 058
     Dates: start: 20090302, end: 20090302
  10. TRANDOLAPRIL [Concomitant]
     Indication: HYPERTENSION
     Dosage: TOTAL DAILY DOSE: 2 MG
     Route: 048
     Dates: start: 20090324
  11. VICODIN [Concomitant]
     Indication: PAIN
     Dosage: 5/500MG
     Route: 048
     Dates: start: 20090324
  12. VERAPAMIL [Concomitant]
     Indication: HYPERTENSION
     Dosage: TOTAL DAILY DOSE: 240 MG
     Route: 048
     Dates: start: 20090324
  13. MOTRIN [Concomitant]
     Dosage: TOTAL DAILY DOSE: 2400 MG
     Route: 048

REACTIONS (12)
  - ABDOMINAL PAIN [None]
  - CONDITION AGGRAVATED [None]
  - DEEP VEIN THROMBOSIS [None]
  - HAEMATOCRIT DECREASED [None]
  - HAEMOGLOBIN DECREASED [None]
  - INTERNATIONAL NORMALISED RATIO DECREASED [None]
  - PALMAR-PLANTAR ERYTHRODYSAESTHESIA SYNDROME [None]
  - PLATELET COUNT INCREASED [None]
  - PNEUMONIA [None]
  - PULMONARY EMBOLISM [None]
  - PULMONARY INFARCTION [None]
  - RED BLOOD CELL COUNT DECREASED [None]
